FAERS Safety Report 14633625 (Version 3)
Quarter: 2018Q2

REPORT INFORMATION
  Report Type: Spontaneous
  Country: US (occurrence: US)
  Receive Date: 20180314
  Receipt Date: 20180425
  Transmission Date: 20180711
  Serious: Yes (Death, Hospitalization, Other)
  Sender: FDA-Public Use
  Company Number: US-AMGEN-USASP2018033631

PATIENT
  Age: 65 Year
  Sex: Female
  Weight: 129 kg

DRUGS (2)
  1. DACOGEN [Concomitant]
     Active Substance: DECITABINE
     Indication: ACUTE MYELOID LEUKAEMIA
     Dosage: 43 MG, UNK
     Dates: start: 201611, end: 201803
  2. NEULASTA [Suspect]
     Active Substance: PEGFILGRASTIM
     Indication: PRODUCT USED FOR UNKNOWN INDICATION
     Dosage: 6 UNIT, Q3WK
     Route: 058
     Dates: start: 201706, end: 201803

REACTIONS (2)
  - Pulmonary hypertension [Unknown]
  - Blast cell crisis [Fatal]

NARRATIVE: CASE EVENT DATE: 201803
